FAERS Safety Report 10009453 (Version 2)
Quarter: 2014Q1

REPORT INFORMATION
  Report Type: Spontaneous
  Country: US (occurrence: US)
  Receive Date: 20140313
  Receipt Date: 20140313
  Transmission Date: 20141002
  Serious: Yes (Other)
  Sender: FDA-Public Use
  Company Number: US-INCYTE CORPORATION-2012IN001271

PATIENT
  Sex: Male

DRUGS (3)
  1. JAKAFI [Suspect]
     Indication: MYELOPROLIFERATIVE DISORDER
     Dosage: 30 MG EVERY MORNING AND 15 MG EVERY NIGHT BEFORE SLEEP
     Route: 048
     Dates: start: 20120217
  2. ASPIRIN [Concomitant]
  3. PROPRANOLOL [Concomitant]

REACTIONS (6)
  - Haemoglobin decreased [Unknown]
  - Oedema peripheral [Unknown]
  - Asthenia [Unknown]
  - Therapeutic response decreased [Unknown]
  - Increased tendency to bruise [Unknown]
  - Platelet count decreased [Unknown]
